FAERS Safety Report 7935480-8 (Version None)
Quarter: 2011Q4

REPORT INFORMATION
  Report Type: 
  Country: None (occurrence: None)
  Receive Date: 20111123
  Receipt Date: 20111118
  Transmission Date: 20120403
  Serious: Yes (Hospitalization)
  Sender: FDA-Public Use
  Company Number: BE-BRISTOL-MYERS SQUIBB COMPANY-15921943

PATIENT
  Age: 53 Year
  Sex: Male
  Weight: 75 kg

DRUGS (17)
  1. CISPLATIN [Suspect]
     Indication: NON-SMALL CELL LUNG CANCER
     Dosage: STUDY THERAPY DISCONTINUED ON 12JUL11
     Route: 042
     Dates: start: 20110708, end: 20110708
  2. PEMETREXED DISODIUM [Suspect]
     Indication: NON-SMALL CELL LUNG CANCER
     Dosage: VIAL,STUDY THERAPY DISCONTINUED ON 12JUL11
     Route: 042
     Dates: start: 20110708, end: 20110708
  3. FUROSEMIDE [Concomitant]
     Dates: start: 20110708, end: 20110708
  4. DICLOFENAC SODIUM [Concomitant]
     Dates: start: 20110301, end: 20110710
  5. ACETAMINOPHEN [Concomitant]
     Dates: start: 20110301
  6. ENOXAPARIN [Concomitant]
     Indication: PULMONARY EMBOLISM
     Dates: start: 20110708, end: 20110711
  7. FOLIC ACID [Concomitant]
     Dates: start: 20110627
  8. BUPRENORPHINE [Concomitant]
     Dates: start: 20110629
  9. TROPISETRON [Concomitant]
     Dates: start: 20110708, end: 20110708
  10. MANNITOL [Concomitant]
     Dates: start: 20110708, end: 20110708
  11. GLUTATHIONE [Concomitant]
     Dates: start: 20110708, end: 20110708
  12. VITAMIN B-12 [Concomitant]
     Dates: start: 20110627, end: 20110627
  13. DEXAMETHASONE [Concomitant]
     Dates: start: 20110706, end: 20110709
  14. TRAZODONE HCL [Concomitant]
     Dates: start: 20110101
  15. CLORAZEPATE DIPOTASSIUM [Concomitant]
     Dates: start: 20110101
  16. APREPITANT [Concomitant]
     Dates: start: 20110708, end: 20110710
  17. MIRTAZAPINE [Concomitant]
     Dates: start: 20070101

REACTIONS (1)
  - UPPER GASTROINTESTINAL HAEMORRHAGE [None]
